FAERS Safety Report 19256149 (Version 1)
Quarter: 2021Q2

REPORT INFORMATION
  Report Type: Report from Study
  Country: CO (occurrence: CO)
  Receive Date: 20210513
  Receipt Date: 20210513
  Transmission Date: 20210717
  Serious: Yes (Hospitalization, Other)
  Sender: FDA-Public Use
  Company Number: CO-BRISTOL-MYERS SQUIBB COMPANY-BMS-2021-009992

PATIENT
  Age: 69 Year
  Sex: Male

DRUGS (3)
  1. YERVOY [Suspect]
     Active Substance: IPILIMUMAB
     Indication: RENAL CANCER
     Dosage: 50 MILLIGRAM, Q3WK
     Route: 042
     Dates: start: 20201118
  2. NIVOLUMAB [Suspect]
     Active Substance: NIVOLUMAB
     Dosage: 180 MILLIGRAM EVERY 15 DAYS
     Route: 042
  3. NIVOLUMAB [Suspect]
     Active Substance: NIVOLUMAB
     Indication: RENAL CANCER
     Dosage: 158 MILLIGRAM, Q3WK
     Route: 042
     Dates: start: 20201118

REACTIONS (3)
  - Chest discomfort [Recovering/Resolving]
  - Off label use [Unknown]
  - Haemorrhage intracranial [Recovering/Resolving]

NARRATIVE: CASE EVENT DATE: 20210127
